FAERS Safety Report 9472383 (Version 1)
Quarter: 2013Q3

REPORT INFORMATION
  Report Type: Spontaneous
  Country: DE (occurrence: DE)
  Receive Date: 20130823
  Receipt Date: 20130823
  Transmission Date: 20140515
  Serious: Yes (Other)
  Sender: FDA-Public Use
  Company Number: DE-MYLANLABS-2013S1017826

PATIENT
  Age: 34 Year
  Sex: Female

DRUGS (3)
  1. DOXEPIN [Suspect]
     Indication: DEPRESSION
     Dosage: 50 [MG/D ]
     Route: 048
  2. OPIPRAMOL [Suspect]
     Indication: DEPRESSION
     Dosage: 200 [MG/D (-100) ]/ 12.SSW DOSISREDUKTION AUF 2X50MG/D
     Route: 048
  3. FOLIC ACID [Concomitant]
     Indication: PROPHYLAXIS OF NEURAL TUBE DEFECT
     Dosage: 0.4 [MG/D ]
     Route: 048

REACTIONS (2)
  - Abortion late [Recovered/Resolved]
  - Exposure during pregnancy [Recovered/Resolved]
